FAERS Safety Report 9118200 (Version 1)
Quarter: 2013Q1

REPORT INFORMATION
  Report Type: Report from Study
  Country: US (occurrence: US)
  Receive Date: 20130129
  Receipt Date: 20130129
  Transmission Date: 20140127
  Serious: No
  Sender: FDA-Public Use
  Company Number: US-ABBOTT-12P-163-0941418-00

PATIENT
  Age: 50 Year
  Sex: Female

DRUGS (4)
  1. HUMIRA 40 MG/0.8 ML PEN [Suspect]
     Indication: PSORIATIC ARTHROPATHY
     Dates: start: 20120409
  2. ORAL CONTRACEPTIVE NOS [Concomitant]
     Indication: MENOPAUSAL SYMPTOMS
  3. MSM [Concomitant]
     Indication: SUPPLEMENTATION THERAPY
  4. CURCUMIN [Concomitant]
     Indication: SUPPLEMENTATION THERAPY

REACTIONS (5)
  - Asthenia [Not Recovered/Not Resolved]
  - Pain in extremity [Not Recovered/Not Resolved]
  - Injection site induration [Recovered/Resolved]
  - Injection site erythema [Recovered/Resolved]
  - Drug effect decreased [Not Recovered/Not Resolved]
